FAERS Safety Report 7316116-6 (Version None)
Quarter: 2011Q1

REPORT INFORMATION
  Report Type: 
  Country: None (occurrence: None)
  Receive Date: 20110225
  Receipt Date: 20110218
  Transmission Date: 20110831
  Serious: Yes (Other)
  Sender: FDA-Public Use
  Company Number: US-CEPHALON-2011000636

PATIENT
  Sex: Male

DRUGS (5)
  1. FENTORA [Suspect]
     Route: 002
     Dates: start: 20101001, end: 20110216
  2. DURAGESIC-100 [Concomitant]
     Route: 062
  3. DURAGESIC-100 [Concomitant]
     Route: 062
  4. FENTORA [Suspect]
     Indication: PAIN
     Route: 002
     Dates: start: 20100101
  5. FENTORA [Suspect]
     Route: 002

REACTIONS (5)
  - CONSTIPATION [None]
  - DRUG INEFFECTIVE FOR UNAPPROVED INDICATION [None]
  - SLUGGISHNESS [None]
  - FATIGUE [None]
  - DRUG PRESCRIBING ERROR [None]
